FAERS Safety Report 6325127-9 (Version None)
Quarter: 2009Q3

REPORT INFORMATION
  Report Type: 
  Country: None (occurrence: None)
  Receive Date: 20090824
  Receipt Date: 20090701
  Transmission Date: 20100115
  Serious: No
  Sender: FDA-Public Use
  Company Number: US-ABBOTT-09P-163-0583083-00

PATIENT
  Sex: Female
  Weight: 101.24 kg

DRUGS (10)
  1. NIASPAN [Suspect]
     Indication: DRUG USE FOR UNKNOWN INDICATION
  2. NIASPAN [Suspect]
     Dosage: DAILY
     Route: 048
  3. SIMVASTATIN [Concomitant]
     Indication: DRUG USE FOR UNKNOWN INDICATION
     Dosage: DAILY
     Route: 048
  4. ASPIRIN [Concomitant]
     Indication: DRUG USE FOR UNKNOWN INDICATION
     Dosage: DAILY
     Route: 048
  5. METFORMIN HCL [Concomitant]
     Indication: DRUG USE FOR UNKNOWN INDICATION
     Dosage: DAILY IN AM
     Route: 048
  6. UNKNOWN INSULIN [Concomitant]
     Indication: DRUG USE FOR UNKNOWN INDICATION
     Dosage: DAILY AT BEDTIME
  7. AMLODIPINE BESYLATE AND BENAZEPRIL HCL [Concomitant]
     Indication: DRUG USE FOR UNKNOWN INDICATION
  8. LASIX [Concomitant]
     Indication: DRUG USE FOR UNKNOWN INDICATION
  9. GARLIC [Concomitant]
     Indication: DRUG USE FOR UNKNOWN INDICATION
  10. LOVAZA [Concomitant]
     Indication: DRUG USE FOR UNKNOWN INDICATION

REACTIONS (5)
  - BACK PAIN [None]
  - BLOOD GLUCOSE INCREASED [None]
  - MUSCULAR WEAKNESS [None]
  - MUSCULOSKELETAL PAIN [None]
  - NECK PAIN [None]
